FAERS Safety Report 17770335 (Version 1)
Quarter: 2020Q2

REPORT INFORMATION
  Report Type: Spontaneous
  Country: US (occurrence: US)
  Receive Date: 20200512
  Receipt Date: 20200512
  Transmission Date: 20200714
  Serious: Yes (Life-Threatening, Hospitalization, Other)
  Sender: FDA-Public Use
  Company Number: US-ACCORD-180814

PATIENT
  Age: 48 Year
  Sex: Male

DRUGS (1)
  1. FLUOROURACIL. [Suspect]
     Active Substance: FLUOROURACIL
     Indication: COLON CANCER STAGE IV
     Dosage: INFUSION

REACTIONS (3)
  - Arteriospasm coronary [Recovered/Resolved]
  - Electrocardiogram ST segment elevation [Recovered/Resolved]
  - Electrocardiogram T wave inversion [Recovered/Resolved]
